FAERS Safety Report 25110588 (Version 1)
Quarter: 2025Q1

REPORT INFORMATION
  Report Type: Spontaneous
  Country: US (occurrence: US)
  Receive Date: 20250324
  Receipt Date: 20250324
  Transmission Date: 20250409
  Serious: Yes (Other)
  Sender: GLAXOSMITHKLINE
  Company Number: US-GSK-US2025GSK033334

PATIENT

DRUGS (2)
  1. BUPROPION [Suspect]
     Active Substance: BUPROPION
     Indication: Depression
     Route: 048
  2. PROPRANOLOL [Suspect]
     Active Substance: PROPRANOLOL HYDROCHLORIDE
     Indication: Product used for unknown indication
     Route: 048

REACTIONS (12)
  - Intentional overdose [Unknown]
  - Cardiogenic shock [Recovering/Resolving]
  - Cardiopulmonary failure [Recovering/Resolving]
  - Ventricular tachycardia [Recovering/Resolving]
  - Cardiac arrest [Recovering/Resolving]
  - Multiple organ dysfunction syndrome [Recovering/Resolving]
  - Unresponsive to stimuli [Recovering/Resolving]
  - Cardiovascular disorder [Recovering/Resolving]
  - Ventricular dysfunction [Recovering/Resolving]
  - Ventricular arrhythmia [Recovering/Resolving]
  - Toxicity to various agents [Recovering/Resolving]
  - Intentional product misuse [Unknown]
